FAERS Safety Report 8949456 (Version 3)
Quarter: 2013Q1

REPORT INFORMATION
  Report Type: Spontaneous
  Country: US (occurrence: US)
  Receive Date: 20121206
  Receipt Date: 20130215
  Transmission Date: 20140127
  Serious: Yes (Other)
  Sender: FDA-Public Use
  Company Number: US-PFIZER INC-2012303098

PATIENT
  Age: 56 Year
  Sex: Male

DRUGS (3)
  1. VIAGRA [Suspect]
     Dosage: 100 MG, AS NEEDED (ONE TABLET)
     Route: 048
     Dates: start: 1999
  2. BROMOCRIPTINE [Concomitant]
     Dosage: UNK
  3. CABERGOLINE [Concomitant]
     Dosage: UNK

REACTIONS (4)
  - Neoplasm malignant [Unknown]
  - Hypertension [Unknown]
  - Headache [Unknown]
  - Arthritis [Not Recovered/Not Resolved]
